FAERS Safety Report 4342118-8 (Version None)
Quarter: 2004Q1

REPORT INFORMATION
  Report Type: 
  Country: None (occurrence: None)
  Receive Date: 20040329
  Receipt Date: 20040119
  Transmission Date: 20041129
  Serious: No
  Sender: FDA-Public Use
  Company Number: 04P-163-0247526-00

PATIENT
  Age: 55 Year
  Sex: Female
  Weight: 68.0396 kg

DRUGS (5)
  1. HUMIRA [Suspect]
     Indication: RHEUMATOID ARTHRITIS
     Dosage: 40 MG, 1 IN 2 WK, SUBCUTANEOUS
     Route: 058
     Dates: start: 20030701
  2. METHOTREXATE SODIUM [Concomitant]
  3. PREDNISONE [Concomitant]
  4. SULFADIMIDINE [Concomitant]
  5. ALENDRONATE SODIUM [Concomitant]

REACTIONS (7)
  - BLOOD OESTROGEN INCREASED [None]
  - GENITAL PRURITUS FEMALE [None]
  - INJECTION SITE ERYTHEMA [None]
  - INJECTION SITE PRURITUS [None]
  - MENSTRUAL DISORDER [None]
  - PROGESTERONE DECREASED [None]
  - VAGINAL DISCHARGE [None]
